FAERS Safety Report 10709729 (Version 3)
Quarter: 2015Q2

REPORT INFORMATION
  Report Type: Spontaneous
  Country: US (occurrence: US)
  Receive Date: 20150114
  Receipt Date: 20150402
  Transmission Date: 20150821
  Serious: Yes (Death, Life-Threatening, Hospitalization, Other)
  Sender: FDA-Public Use
  Company Number: US-BAYER-2015-001443

PATIENT
  Age: 65 Year
  Sex: Male
  Weight: 84 kg

DRUGS (17)
  1. OSTEO BI-FLEX [Suspect]
     Active Substance: CHONDROITIN SULFATE A\GLUCOSAMINE
     Dosage: 2 TABLETS DAILY
     Route: 048
     Dates: start: 2012, end: 201411
  2. ACETAMINOPHEN W/HYDROCODONE [Concomitant]
     Active Substance: ACETAMINOPHEN\HYDROCODONE
     Dosage: UNK, QID
  3. MULTIVITAMIN [Concomitant]
     Active Substance: VITAMINS
  4. DICLOFENAC [Concomitant]
     Active Substance: DICLOFENAC
     Dosage: UNK UNK, BID
     Route: 061
  5. ESOMEPRAZOLE [Concomitant]
     Active Substance: ESOMEPRAZOLE
     Dosage: 40 MG, QD
  6. IBUPROFEN. [Concomitant]
     Active Substance: IBUPROFEN
     Dosage: 200 MG, PRN
  7. WARFARIN [Interacting]
     Active Substance: WARFARIN
     Dosage: 2.5 DAILY
  8. VITAMIN D [Concomitant]
     Active Substance: CHOLECALCIFEROL
  9. ALKA-SELTZER PLUS COLD FORMULA [Suspect]
     Active Substance: ASPIRIN\CHLORPHENIRAMINE MALEATE\PHENYLEPHRINE BITARTRATE
     Indication: NASOPHARYNGITIS
     Dosage: 2 DF, Q4HR
     Route: 048
     Dates: start: 201410, end: 201411
  10. FERROUS SULFATE [Concomitant]
     Active Substance: FERROUS SULFATE\FERROUS SULFATE, DRIED
     Dosage: 325 MG, UNK
  11. STOOL SOFTENER [Concomitant]
     Active Substance: DOCUSATE CALCIUM
     Dosage: UNK UNK, BID
  12. LISINOPRIL. [Concomitant]
     Active Substance: LISINOPRIL
     Dosage: 2.5 MG, QD
  13. TAMSULOSIN HYDROCHLORIDE. [Concomitant]
     Active Substance: TAMSULOSIN HYDROCHLORIDE
     Dosage: 0.4 MG, QD
  14. METOPROLOL TARTRATE. [Concomitant]
     Active Substance: METOPROLOL TARTRATE
     Dosage: 25 MG, QD
  15. SIMVASTATIN. [Concomitant]
     Active Substance: SIMVASTATIN
     Dosage: 20 MG, QD
  16. METFORMIN HCL [Concomitant]
     Active Substance: METFORMIN HYDROCHLORIDE
     Dosage: 500 MG, HS
  17. FLUTICASONE W/SALMETEROL [Concomitant]
     Active Substance: FLUTICASONE PROPIONATE\SALMETEROL XINAFOATE
     Dosage: 1 DF, BID

REACTIONS (36)
  - Hypoaesthesia [Recovered/Resolved]
  - Gait disturbance [None]
  - Incorrect drug administration duration [None]
  - Labelled drug-drug interaction medication error [None]
  - Sepsis [None]
  - Streptococcal sepsis [None]
  - Constipation [Unknown]
  - Hyperhidrosis [None]
  - Pulmonary hypertension [Unknown]
  - Vision blurred [None]
  - Diarrhoea [Unknown]
  - Flank pain [None]
  - Hyperkalaemia [None]
  - Intracranial aneurysm [Fatal]
  - Cerebral haemorrhage [Fatal]
  - Hemiparesis [None]
  - Septic shock [None]
  - Coagulopathy [None]
  - Decreased appetite [Unknown]
  - Hypotension [None]
  - Pyrexia [None]
  - International normalised ratio increased [None]
  - Urine output decreased [None]
  - Cystitis [None]
  - Urinary tract infection [None]
  - Hypoxia [Unknown]
  - Retching [Unknown]
  - Oedema peripheral [Unknown]
  - Acute kidney injury [None]
  - Dyspnoea [Unknown]
  - Cerebrovascular accident [Fatal]
  - Sudden visual loss [None]
  - Cardiac infection [None]
  - Joint range of motion decreased [None]
  - Asthenia [Unknown]
  - Chills [None]

NARRATIVE: CASE EVENT DATE: 2014
